FAERS Safety Report 24349845 (Version 1)
Quarter: 2024Q3

REPORT INFORMATION
  Report Type: Report from Study
  Country: IT (occurrence: IT)
  Receive Date: 20240923
  Receipt Date: 20240923
  Transmission Date: 20241017
  Serious: No
  Sender: ROCHE
  Company Number: IT-ROCHE-3489025

PATIENT
  Age: 52 Year
  Sex: Female
  Weight: 68.0 kg

DRUGS (37)
  1. HERCEPTIN [Suspect]
     Active Substance: TRASTUZUMAB
     Indication: HER2 positive breast cancer
     Route: 042
     Dates: start: 20170315, end: 20170315
  2. HERCEPTIN [Suspect]
     Active Substance: TRASTUZUMAB
     Route: 042
     Dates: start: 20170405, end: 20181003
  3. PERJETA [Suspect]
     Active Substance: PERTUZUMAB
     Indication: HER2 positive breast cancer
     Route: 042
     Dates: start: 20170405, end: 20181003
  4. PERJETA [Suspect]
     Active Substance: PERTUZUMAB
     Route: 042
     Dates: start: 20170315, end: 20170315
  5. XELODA [Suspect]
     Active Substance: CAPECITABINE
     Indication: HER2 positive breast cancer
     Dosage: FROM DAY 1 TO DAY 14 EVERY 3 WEEKS
     Route: 048
     Dates: start: 20190606, end: 20190606
  6. XELODA [Suspect]
     Active Substance: CAPECITABINE
     Dosage: FROM DAY 1 TO DAY 14 EVERY 3 WEEKS? FREQUENCY TEXT:OTHER
     Route: 048
     Dates: start: 20190718, end: 20190919
  7. XELODA [Suspect]
     Active Substance: CAPECITABINE
     Dosage: FROM DAY 1 TO DAY 14 EVERY 3 WEEKS? FREQUENCY TEXT:OTHER
     Route: 048
     Dates: start: 20191010, end: 20200923
  8. XELODA [Suspect]
     Active Substance: CAPECITABINE
     Route: 048
     Dates: start: 20200924, end: 20201215
  9. TAXOTERE [Suspect]
     Active Substance: DOCETAXEL
     Indication: HER2 positive breast cancer
     Route: 042
     Dates: start: 20170315, end: 20170628
  10. FASLODEX [Suspect]
     Active Substance: FULVESTRANT
     Indication: HER2 positive breast cancer
     Route: 030
     Dates: start: 20181030, end: 20190418
  11. PALBOCICLIB [Suspect]
     Active Substance: PALBOCICLIB
     Indication: HER2 positive breast cancer
     Dosage: FREQUENCY: OTHER?1 TABLET/DIE FOR 21 DAYS AN THEN 1 WEEK STOP
     Route: 048
     Dates: start: 20181031, end: 20190508
  12. CYTOXAN [Suspect]
     Active Substance: CYCLOPHOSPHAMIDE
     Indication: HER2 positive breast cancer
     Route: 048
     Dates: start: 20200924, end: 20201215
  13. NAVELBINE [Suspect]
     Active Substance: VINORELBINE TARTRATE
     Indication: HER2 positive breast cancer
     Dosage: TWO TABLETS/DIE THREE TIMES A WEEK? FREQUENCY TEXT:OTHER
     Route: 048
     Dates: start: 20201216, end: 20210104
  14. NAVELBINE [Suspect]
     Active Substance: VINORELBINE TARTRATE
     Dosage: TWO TABLETS/DIE THREE TIMES A WEEK? FREQUENCY TEXT:OTHER
     Route: 048
     Dates: start: 20210105, end: 20210401
  15. PARAPLATIN [Suspect]
     Active Substance: CARBOPLATIN
     Indication: HER2 positive breast cancer
     Route: 042
     Dates: start: 20210702, end: 20220117
  16. TAXOL [Suspect]
     Active Substance: PACLITAXEL
     Indication: HER2 positive breast cancer
     Route: 042
     Dates: start: 20210702, end: 20220117
  17. FEMARA [Suspect]
     Active Substance: LETROZOLE
     Indication: HER2 positive breast cancer
     Route: 048
     Dates: start: 20170920, end: 20181031
  18. SACITUZUMAB GOVITECAN [Suspect]
     Active Substance: SACITUZUMAB GOVITECAN
     Indication: HER2 positive breast cancer
     Dosage: DAY 1 AND DAY 8 FOR CYCLE? FREQUENCY TEXT:OTHER
     Route: 042
     Dates: start: 20220131, end: 20220131
  19. SACITUZUMAB GOVITECAN [Suspect]
     Active Substance: SACITUZUMAB GOVITECAN
     Dosage: DAY 1 AND DAY 8 FOR CYCLE? FREQUENCY TEXT:OTHER
     Route: 042
     Dates: start: 20220207, end: 20220314
  20. SACITUZUMAB GOVITECAN [Suspect]
     Active Substance: SACITUZUMAB GOVITECAN
     Dosage: DAY 1 AND DAY 8 FOR CYCLE? FREQUENCY TEXT:OTHER
     Route: 042
     Dates: start: 20220321, end: 20220321
  21. SACITUZUMAB GOVITECAN [Suspect]
     Active Substance: SACITUZUMAB GOVITECAN
     Dosage: DAY 1 AND DAY 8 FOR CYCLE? FREQUENCY TEXT:OTHER
     Route: 042
     Dates: start: 20220404, end: 20220411
  22. DOXORUBICIN HYDROCHLORIDE [Suspect]
     Active Substance: DOXORUBICIN HYDROCHLORIDE
     Indication: HER2 positive breast cancer
     Route: 042
     Dates: start: 20210408, end: 20210610
  23. ASPIRIN [Concomitant]
     Active Substance: ASPIRIN
     Dosage: ONGOING = NOT CHECKED
     Dates: start: 20210408, end: 20220510
  24. GRANISETRON [Concomitant]
     Active Substance: GRANISETRON
     Dosage: ONGOING = NOT CHECKED
     Route: 048
     Dates: start: 20210408, end: 20220510
  25. GRANISETRON [Concomitant]
     Active Substance: GRANISETRON
     Route: 042
     Dates: start: 20170405, end: 20170628
  26. PANTOPRAZOLE SODIUM [Concomitant]
     Active Substance: PANTOPRAZOLE SODIUM
     Dosage: ONGOING = NOT CHECKED
     Dates: start: 20210408, end: 20220510
  27. METOCLOPRAMIDE HYDROCHLORIDE [Concomitant]
     Active Substance: METOCLOPRAMIDE HYDROCHLORIDE
     Dosage: ONGOING = NOT CHECKED
     Dates: start: 20210408, end: 20220510
  28. ACETAMINOPHEN\CODEINE PHOSPHATE [Concomitant]
     Active Substance: ACETAMINOPHEN\CODEINE PHOSPHATE
     Dosage: ONGOING = NOT CHECKED
     Dates: start: 20210408, end: 20220510
  29. BISOPROLOL FUMARATE [Concomitant]
     Active Substance: BISOPROLOL FUMARATE
     Dosage: ONGOING = NOT CHECKED
     Dates: start: 20210412, end: 20220510
  30. PALEXIA [Concomitant]
     Active Substance: TAPENTADOL HYDROCHLORIDE
     Dosage: ONGOING = NOT CHECKED
     Dates: start: 20210520, end: 20220510
  31. DEXAMETHASONE [Concomitant]
     Active Substance: DEXAMETHASONE
     Dosage: ONGOING = NOT CHECKED
     Dates: start: 20210927, end: 20220510
  32. CHLORPHENIRAMINE MALEATE [Concomitant]
     Active Substance: CHLORPHENIRAMINE MALEATE
     Route: 042
     Dates: start: 20170405, end: 20180103
  33. RANITIDINE [Concomitant]
     Active Substance: RANITIDINE
     Route: 042
     Dates: start: 20170405, end: 20170628
  34. METHYLPREDNISOLONE [Concomitant]
     Active Substance: METHYLPREDNISOLONE
     Route: 042
     Dates: start: 20170405, end: 20170628
  35. METOCLOPRAMIDE [Concomitant]
     Active Substance: METOCLOPRAMIDE
  36. ENOXAPARIN SODIUM [Concomitant]
     Active Substance: ENOXAPARIN SODIUM
  37. DEXTROSE [Concomitant]
     Active Substance: DEXTROSE\DEXTROSE MONOHYDRATE

REACTIONS (2)
  - Asthenia [Not Recovered/Not Resolved]
  - Nausea [Not Recovered/Not Resolved]

NARRATIVE: CASE EVENT DATE: 20220207
